FAERS Safety Report 19857078 (Version 1)
Quarter: 2021Q3

REPORT INFORMATION
  Report Type: Report from Study
  Country: JP (occurrence: JP)
  Receive Date: 20210920
  Receipt Date: 20210920
  Transmission Date: 20211014
  Serious: Yes (Death, Hospitalization, Other)
  Sender: FDA-Public Use
  Company Number: JP-BAYER-2021-213006

PATIENT
  Age: 42 Year
  Sex: Female

DRUGS (21)
  1. EPOPROSTENOL. [Concomitant]
     Active Substance: EPOPROSTENOL
     Indication: PULMONARY ARTERIAL HYPERTENSION
     Dosage: 104 NG/KG/MIN
     Route: 042
     Dates: start: 20210514, end: 20210528
  2. SAMSCA [Concomitant]
     Active Substance: TOLVAPTAN
     Dosage: DAILY DOSE 15 MG
     Route: 048
     Dates: end: 20210817
  3. UPTRAVI [Concomitant]
     Active Substance: SELEXIPAG
     Indication: PULMONARY ARTERIAL HYPERTENSION
     Dosage: DAILY DOSE 3.2 MG
     Route: 048
     Dates: end: 20210817
  4. TREPROSTINIL. [Concomitant]
     Active Substance: TREPROSTINIL
     Indication: PULMONARY ARTERIAL HYPERTENSION
     Dosage: 154 NG/KG/MIN
     Route: 042
     Dates: start: 20210528, end: 20210817
  5. PIMOBENDAN [Concomitant]
     Active Substance: PIMOBENDAN
     Dosage: DAILY DOSE 5 MG
     Route: 048
     Dates: start: 20210717, end: 20210817
  6. SPIRONOLACTONE. [Concomitant]
     Active Substance: SPIRONOLACTONE
     Dosage: DAILY DOSE 50 MG
     Route: 048
     Dates: end: 20210817
  7. FUROSEMIDE. [Concomitant]
     Active Substance: FUROSEMIDE
     Dosage: DAILY DOSE 240 MG
     Route: 048
     Dates: start: 20210609, end: 20210817
  8. FUROSEMIDE. [Concomitant]
     Active Substance: FUROSEMIDE
     Dosage: DAILY DOSE 120 MG
     Route: 042
     Dates: start: 20210726, end: 20210817
  9. POTASSIUM CHLORIDE. [Concomitant]
     Active Substance: POTASSIUM CHLORIDE
     Dosage: DAILY DOSE 5 G
     Route: 048
     Dates: start: 20210609, end: 20210817
  10. ADEMPAS [Suspect]
     Active Substance: RIOCIGUAT
     Indication: PULMONARY ARTERIAL HYPERTENSION
     Dosage: DAILY DOSE 1.5 MG
     Route: 048
     Dates: start: 20210530, end: 20210731
  11. FUROSEMIDE. [Concomitant]
     Active Substance: FUROSEMIDE
     Dosage: DAILY DOSE 160 MG
     Route: 048
     Dates: end: 20210608
  12. ADEMPAS [Suspect]
     Active Substance: RIOCIGUAT
     Indication: PULMONARY ARTERIAL HYPERTENSION
     Dosage: DAILY DOSE 4.5 MG
     Route: 048
     Dates: start: 20210527, end: 20210529
  13. FUROSEMIDE. [Concomitant]
     Active Substance: FUROSEMIDE
     Dosage: DAILY DOSE 80 MG
     Route: 042
     Dates: start: 20210524, end: 20210719
  14. ADEMPAS [Suspect]
     Active Substance: RIOCIGUAT
     Indication: PULMONARY ARTERIAL HYPERTENSION
     Dosage: DAILY DOSE 2 MG
     Route: 048
     Dates: start: 20210801, end: 20210817
  15. POTASSIUM CHLORIDE. [Concomitant]
     Active Substance: POTASSIUM CHLORIDE
     Dosage: DAILY DOSE 2 G
     Route: 048
     Dates: end: 20210608
  16. OPSUMIT [Concomitant]
     Active Substance: MACITENTAN
     Indication: PULMONARY ARTERIAL HYPERTENSION
     Dosage: DAILY DOSE 10 MG
     Route: 048
     Dates: end: 20210817
  17. FUROSEMIDE. [Concomitant]
     Active Substance: FUROSEMIDE
     Dosage: DAILY DOSE 80 MG
     Route: 042
     Dates: start: 20210724, end: 20210725
  18. PIMOBENDAN [Concomitant]
     Active Substance: PIMOBENDAN
     Dosage: DAILY DOSE 1.25 MG
     Route: 048
     Dates: end: 20210630
  19. PIMOBENDAN [Concomitant]
     Active Substance: PIMOBENDAN
     Dosage: DAILY DOSE 2.5 MG
     Route: 048
     Dates: start: 20210701, end: 20210716
  20. ADEMPAS [Suspect]
     Active Substance: RIOCIGUAT
     Indication: PULMONARY ARTERIAL HYPERTENSION
     Dosage: DAILY DOSE 3 MG
     Route: 048
     Dates: start: 20210526, end: 20210526
  21. OXYGEN. [Concomitant]
     Active Substance: OXYGEN
     Indication: PULMONARY ARTERIAL HYPERTENSION
     Dosage: UNK
     Dates: end: 20210817

REACTIONS (5)
  - Right ventricular failure [Not Recovered/Not Resolved]
  - Cough [Not Recovered/Not Resolved]
  - Back pain [Not Recovered/Not Resolved]
  - Circulatory collapse [Fatal]
  - Productive cough [Not Recovered/Not Resolved]

NARRATIVE: CASE EVENT DATE: 202105
